FAERS Safety Report 23486676 (Version 1)
Quarter: 2024Q1

REPORT INFORMATION
  Report Type: Report from Study
  Country: US (occurrence: US)
  Receive Date: 20240206
  Receipt Date: 20240206
  Transmission Date: 20240409
  Serious: Yes (Disabling)
  Sender: FDA-Public Use
  Company Number: US-ALNYLAM PHARMACEUTICALS, INC.-ALN-2023-006997

PATIENT

DRUGS (1)
  1. GIVLAARI [Suspect]
     Active Substance: GIVOSIRAN SODIUM
     Indication: Porphyria
     Dosage: INJECTION TO LOWER BACK/HIP, MONTHLY
     Route: 065
     Dates: start: 2020, end: 202307

REACTIONS (2)
  - Porphyria acute [Not Recovered/Not Resolved]
  - Feeling abnormal [Not Recovered/Not Resolved]
